FAERS Safety Report 8417952-5 (Version None)
Quarter: 2012Q2

REPORT INFORMATION
  Report Type: 
  Country: None (occurrence: None)
  Receive Date: 20120531
  Receipt Date: 20120522
  Transmission Date: 20120825
  Serious: Yes (Other)
  Sender: FDA-Public Use
  Company Number: 201204052

PATIENT
  Age: 66 Year
  Sex: Male

DRUGS (6)
  1. COUMADIN [Concomitant]
  2. ALLOPURINOL [Concomitant]
  3. SIMVASTATIN [Concomitant]
  4. ATROVENT [Concomitant]
  5. HYDROCHLOROTHIAZIDE [Concomitant]
  6. XIAFLEX [Suspect]
     Indication: DUPUYTREN'S CONTRACTURE
     Dosage: 0.58 MG, 1 IN 1 D, INTRALESIONAL
     Route: 026
     Dates: start: 20120418, end: 20120418

REACTIONS (4)
  - LACERATION [None]
  - INJECTION SITE HAEMATOMA [None]
  - EXCESSIVE GRANULATION TISSUE [None]
  - SKIN GRAFT [None]
